FAERS Safety Report 5007410-2 (Version None)
Quarter: 2006Q2

REPORT INFORMATION
  Report Type: 
  Country: None (occurrence: None)
  Receive Date: 20060518
  Receipt Date: 20060518
  Transmission Date: 20061013
  Serious: Yes (Hospitalization, Disabling)
  Sender: FDA-Public Use
  Company Number: None

PATIENT
  Sex: Male
  Weight: 0.98 kg

DRUGS (1)
  1. INDOMETHACIN [Suspect]
     Indication: PATENT DUCTUS ARTERIOSUS
     Dosage: 0.2MG/KG/DOSE Q12H IV
     Route: 042
     Dates: start: 20060316, end: 20060317

REACTIONS (2)
  - ABDOMINAL DISTENSION [None]
  - X-RAY ABNORMAL [None]
